FAERS Safety Report 17987926 (Version 1)
Quarter: 2020Q3

REPORT INFORMATION
  Report Type: Spontaneous
  Country: IT (occurrence: IT)
  Receive Date: 20200707
  Receipt Date: 20200707
  Transmission Date: 20201103
  Serious: Yes (Death, Other)
  Sender: FDA-Public Use
  Company Number: IT-HORIZON-PRE-0201-2020

PATIENT

DRUGS (2)
  1. PREDNISONE. [Suspect]
     Active Substance: PREDNISONE
     Indication: PERICARDITIS
     Dosage: 15 MG, TAPERED DOSE, INCREASED AGAIN TO 15MG, TAPERED DOSE
     Route: 064
  2. PARACETAMOL [Suspect]
     Active Substance: ACETAMINOPHEN
     Indication: PERICARDITIS
     Route: 064

REACTIONS (2)
  - Amniotic cavity infection [Fatal]
  - Foetal exposure during pregnancy [Unknown]
